FAERS Safety Report 7548543-6 (Version None)
Quarter: 2011Q2

REPORT INFORMATION
  Report Type: 
  Country: None (occurrence: None)
  Receive Date: 20110615
  Receipt Date: 20110608
  Transmission Date: 20111010
  Serious: Yes (Other)
  Sender: FDA-Public Use
  Company Number: US-SANOFI-AVENTIS-2011SA026786

PATIENT
  Age: 62 Year
  Sex: Female

DRUGS (3)
  1. LANTUS [Suspect]
     Dosage: DOSE:100 UNIT(S)
     Route: 058
     Dates: start: 20110101
  2. REGULAR INSULIN [Concomitant]
  3. LANTUS [Suspect]
     Dosage: DOSE:80 UNIT(S)
     Route: 058
     Dates: start: 20110101, end: 20110101

REACTIONS (2)
  - BLOOD GLUCOSE INCREASED [None]
  - RIB FRACTURE [None]
